FAERS Safety Report 5078509-X (Version None)
Quarter: 2006Q3

REPORT INFORMATION
  Report Type: 
  Country: None (occurrence: None)
  Receive Date: 20060811
  Receipt Date: 20060801
  Transmission Date: 20061208
  Serious: Yes (Life-Threatening, Hospitalization, Other)
  Sender: FDA-Public Use
  Company Number: US-GILEAD-2006-0009979

PATIENT
  Sex: Male

DRUGS (7)
  1. VIREAD [Suspect]
     Indication: HIV INFECTION
     Route: 048
     Dates: end: 20060720
  2. TRUVADA [Suspect]
     Indication: HIV INFECTION
     Route: 048
     Dates: start: 20060720, end: 20060727
  3. KALETRA [Concomitant]
     Indication: HIV INFECTION
     Route: 048
     Dates: end: 20060727
  4. EPIVIR [Concomitant]
     Indication: HIV INFECTION
     Route: 048
     Dates: end: 20060720
  5. CRESTOR [Concomitant]
     Indication: BLOOD CHOLESTEROL INCREASED
     Route: 048
     Dates: end: 20060720
  6. DEPAKOTE [Concomitant]
     Route: 048
     Dates: end: 20060720
  7. K-DUR 10 [Concomitant]
     Indication: BLOOD POTASSIUM DECREASED
     Route: 048
     Dates: end: 20060727

REACTIONS (9)
  - BACTERIA SPUTUM IDENTIFIED [None]
  - BLOOD CREATININE INCREASED [None]
  - BLOOD POTASSIUM DECREASED [None]
  - CARBON DIOXIDE DECREASED [None]
  - ENTEROCOCCAL SEPSIS [None]
  - FANCONI SYNDROME ACQUIRED [None]
  - FURUNCLE [None]
  - METABOLIC ACIDOSIS [None]
  - NEPHROGENIC DIABETES INSIPIDUS [None]
